FAERS Safety Report 7503241-X (Version None)
Quarter: 2011Q2

REPORT INFORMATION
  Report Type: 
  Country: None (occurrence: None)
  Receive Date: 20110525
  Receipt Date: 20100827
  Transmission Date: 20111010
  Serious: No
  Sender: FDA-Public Use
  Company Number: A0879289A

PATIENT
  Sex: Female

DRUGS (1)
  1. BACTROBAN [Suspect]
     Indication: PSEUDOMONAS INFECTION
     Route: 045

REACTIONS (2)
  - DYSPNOEA [None]
  - DRUG INEFFECTIVE [None]
